FAERS Safety Report 9447710 (Version 1)
Quarter: 2013Q3

REPORT INFORMATION
  Report Type: Spontaneous
  Country: FR (occurrence: None)
  Receive Date: 20130805
  Receipt Date: 20130805
  Transmission Date: 20140515
  Serious: Yes (Hospitalization)
  Sender: FDA-Public Use
  Company Number: 1754112

PATIENT
  Age: 68 Year
  Sex: Male
  Weight: 62 kg

DRUGS (3)
  1. CARBOPLATIN [Suspect]
     Indication: PERICARDITIS MALIGNANT
     Dosage: 410 MG MILLIGRAM INTRAVENOUS (NOT OTHEWISE SPECIFIED)
     Route: 042
     Dates: start: 20121212, end: 20121212
  2. GEMCITABINE [Suspect]
     Indication: PERICARDITIS MALIGNANT
     Dosage: 1760 MG MILLIGRAM, INTRAVENOUS (NOT OTHERWISE SPECIFED)
     Route: 042
     Dates: start: 20121212, end: 20121212
  3. INNOHEP [Concomitant]

REACTIONS (12)
  - Pancytopenia [None]
  - Benign salivary gland neoplasm [None]
  - Jugular vein thrombosis [None]
  - Pericarditis malignant [None]
  - Heparin-induced thrombocytopenia [None]
  - Melaena [None]
  - Treatment failure [None]
  - Hyperlactacidaemia [None]
  - Renal impairment [None]
  - Blood creatinine increased [None]
  - Febrile neutropenia [None]
  - Septic shock [None]
